FAERS Safety Report 5986414-7 (Version None)
Quarter: 2008Q4

REPORT INFORMATION
  Report Type: 
  Country: None (occurrence: None)
  Receive Date: 20081203
  Receipt Date: 20081124
  Transmission Date: 20090506
  Serious: Yes (Other)
  Sender: FDA-Public Use
  Company Number: 2008AP003046

PATIENT
  Age: 35 Year
  Sex: Female

DRUGS (2)
  1. TERBINAFINE HCL [Suspect]
     Dosage: 250 MG; QD; PO
     Route: 048
     Dates: start: 20080916, end: 20081013
  2. FLUOXETINE HCL [Concomitant]

REACTIONS (3)
  - ANXIETY [None]
  - PANIC ATTACK [None]
  - SUICIDAL IDEATION [None]
